FAERS Safety Report 14727705 (Version 1)
Quarter: 2018Q2

REPORT INFORMATION
  Report Type: Spontaneous
  Country: BR (occurrence: BR)
  Receive Date: 20180406
  Receipt Date: 20180406
  Transmission Date: 20180711
  Serious: Yes (Death, Other)
  Sender: FDA-Public Use
  Company Number: BR-JNJFOC-20180404637

PATIENT
  Sex: Female

DRUGS (2)
  1. DUROGESIC D-TRANS [Suspect]
     Active Substance: FENTANYL
     Indication: PAIN
     Route: 062
     Dates: start: 2017
  2. DIMORF [Concomitant]
     Active Substance: MORPHINE SULFATE
     Route: 065

REACTIONS (3)
  - Bone cancer [Fatal]
  - Aortic stenosis [Fatal]
  - Hypertension [Fatal]
